FAERS Safety Report 9174271 (Version 1)
Quarter: 2013Q1

REPORT INFORMATION
  Report Type: Spontaneous
  Country: GB (occurrence: GB)
  Receive Date: 20130320
  Receipt Date: 20130320
  Transmission Date: 20140127
  Serious: Yes (Other)
  Sender: FDA-Public Use
  Company Number: GB-PFIZER INC-2013088284

PATIENT
  Sex: Female
  Weight: 79.37 kg

DRUGS (3)
  1. VENLAFAXINE HYDROCHLORIDE [Suspect]
     Indication: DEPRESSION
     Dosage: 150 TO 75 MG
     Route: 048
     Dates: start: 2006
  2. PROPRANOLOL [Suspect]
     Indication: MIGRAINE
     Dosage: UNK
     Route: 048
     Dates: start: 201212, end: 201302
  3. CERAZETTE [Concomitant]

REACTIONS (4)
  - Disturbance in sexual arousal [Not Recovered/Not Resolved]
  - Fatigue [Recovering/Resolving]
  - Anorgasmia [Recovering/Resolving]
  - Disturbance in attention [Not Recovered/Not Resolved]
